FAERS Safety Report 11370398 (Version 1)
Quarter: 2015Q3

REPORT INFORMATION
  Report Type: Spontaneous
  Country: FR (occurrence: FR)
  Receive Date: 20150812
  Receipt Date: 20150812
  Transmission Date: 20151125
  Serious: Yes (Hospitalization)
  Sender: FDA-Public Use
  Company Number: FR-SA-2015SA119327

PATIENT
  Age: 72 Year
  Sex: Male

DRUGS (12)
  1. CORDARONE [Concomitant]
     Active Substance: AMIODARONE HYDROCHLORIDE
     Dosage: 200 MG SCORED TABLET
     Route: 048
     Dates: end: 20150604
  2. DAFALGAN [Concomitant]
     Active Substance: ACETAMINOPHEN
     Dosage: STRENGTH: 1 G
     Route: 048
  3. RAMIPRIL. [Suspect]
     Active Substance: RAMIPRIL
     Route: 048
     Dates: end: 20150601
  4. XATRAL [Concomitant]
     Active Substance: ALFUZOSIN
     Dosage: STRENGTH: 10 MG
     Route: 048
  5. TEMESTA [Concomitant]
     Active Substance: LORAZEPAM
     Dosage: 2.5 MG SCORED TABLET
     Route: 048
  6. KARDEGIC [Concomitant]
     Active Substance: ASPIRIN LYSINE
     Dosage: STRENGTH: 75 MG ?IN DOSE SACHET
     Route: 048
  7. LYRICA [Concomitant]
     Active Substance: PREGABALIN
     Dosage: STRENGTH: 50 MG
     Route: 048
  8. LASILIX SPECIAL [Suspect]
     Active Substance: FUROSEMIDE
     Dosage: SCORED TABLET
     Route: 048
  9. LANSOPRAZOLE. [Concomitant]
     Active Substance: LANSOPRAZOLE
     Dosage: STRENGTH: 15 MG
     Route: 048
  10. NOVOMIX [Concomitant]
     Active Substance: INSULIN ASPART
     Dosage: 30MG 18.0.16U
  11. CIFLOX [Suspect]
     Active Substance: CIPROFLOXACIN
     Indication: PROSTATITIS
     Route: 048
     Dates: start: 20150511, end: 20150520
  12. ESIDREX [Suspect]
     Active Substance: HYDROCHLOROTHIAZIDE
     Route: 048
     Dates: end: 20150601

REACTIONS (2)
  - Disorientation [Recovered/Resolved]
  - Acute kidney injury [Recovered/Resolved]

NARRATIVE: CASE EVENT DATE: 20150529
